FAERS Safety Report 7600404-X (Version None)
Quarter: 2011Q3

REPORT INFORMATION
  Report Type: 
  Country: None (occurrence: None)
  Receive Date: 20110711
  Receipt Date: 20110701
  Transmission Date: 20111222
  Serious: Yes (Death, Other)
  Sender: FDA-Public Use
  Company Number: DE-GENZYME-FLUD-1001274

PATIENT
  Age: 65 Year
  Sex: Female

DRUGS (5)
  1. PENTAMIDINE ISETHIONATE [Concomitant]
     Indication: ANTIFUNGAL PROPHYLAXIS
  2. FLUDARA [Suspect]
     Indication: MULTIPLE MYELOMA
     Dosage: 90 MG/M2, UNK
     Route: 065
  3. FLUDARA [Suspect]
     Indication: BONE MARROW CONDITIONING REGIMEN
  4. MELPHALAN HYDROCHLORIDE [Suspect]
     Indication: MULTIPLE MYELOMA
     Dosage: 140 MG/M2, UNK
     Route: 065
  5. MELPHALAN HYDROCHLORIDE [Suspect]
     Indication: BONE MARROW CONDITIONING REGIMEN

REACTIONS (4)
  - ACUTE GRAFT VERSUS HOST DISEASE [None]
  - MULTI-ORGAN FAILURE [None]
  - TOXOPLASMOSIS [None]
  - ENGRAFTMENT SYNDROME [None]
